FAERS Safety Report 25676348 (Version 1)
Quarter: 2025Q3

REPORT INFORMATION
  Report Type: Spontaneous
  Country: US (occurrence: None)
  Receive Date: 20250813
  Receipt Date: 20250813
  Transmission Date: 20251021
  Serious: No
  Sender: INCYTE
  Company Number: US-INCYTE CORPORATION-2025IN008640

PATIENT
  Age: 77 Year

DRUGS (1)
  1. JAKAFI [Suspect]
     Active Substance: RUXOLITINIB
     Indication: Myelofibrosis
     Dosage: 15 MILLIGRAM, BID

REACTIONS (4)
  - Laboratory test abnormal [Unknown]
  - Back disorder [Unknown]
  - Decreased activity [Unknown]
  - Depression [Unknown]
